FAERS Safety Report 9047087 (Version 1)
Quarter: 2013Q1

REPORT INFORMATION
  Report Type: Spontaneous
  Country: US (occurrence: None)
  Receive Date: 20130129
  Receipt Date: 20130129
  Transmission Date: 20140127
  Serious: Yes (Other)
  Sender: FDA-Public Use
  Company Number: None

PATIENT
  Age: 57 Year
  Sex: Female

DRUGS (1)
  1. COPAXONE 20 MG SQ ONCE DAILY TEVA PHARMACEUTICAL LTD [Suspect]
     Indication: MULTIPLE SCLEROSIS
     Route: 058
     Dates: start: 201105, end: 20130124

REACTIONS (4)
  - Pruritus [None]
  - Oral pruritus [None]
  - Pruritus [None]
  - Pruritus [None]
